FAERS Safety Report 6759766-8 (Version None)
Quarter: 2010Q2

REPORT INFORMATION
  Report Type: 
  Country: None (occurrence: None)
  Receive Date: 20100608
  Receipt Date: 20100602
  Transmission Date: 20101027
  Serious: Yes (Other)
  Sender: FDA-Public Use
  Company Number: US-WYE-H15475510

PATIENT
  Sex: Male

DRUGS (1)
  1. TORISEL [Suspect]
     Dosage: UNKNOWN
     Route: 042
     Dates: start: 20100101, end: 20100101

REACTIONS (3)
  - DYSPNOEA [None]
  - HYPOXIA [None]
  - PYREXIA [None]
